FAERS Safety Report 6688579-0 (Version None)
Quarter: 2010Q2

REPORT INFORMATION
  Report Type: 
  Country: None (occurrence: None)
  Receive Date: 20100420
  Receipt Date: 20100412
  Transmission Date: 20101027
  Serious: Yes (Life-Threatening, Hospitalization)
  Sender: FDA-Public Use
  Company Number: GB-PFIZER INC-2010045558

PATIENT
  Age: 86 Year
  Sex: Male

DRUGS (5)
  1. AMLODIPINE BESYLATE [Suspect]
     Dosage: 5 MG, 1X/DAY
     Route: 048
     Dates: start: 20091127, end: 20100324
  2. ACETYLSALICYLIC ACID [Concomitant]
     Indication: ANGINA PECTORIS
     Dosage: 75 MG, 1X/DAY
     Route: 048
     Dates: start: 19900101
  3. ATENOLOL [Concomitant]
     Indication: HYPERTENSION
     Dosage: 50 MG, 1X/DAY
     Route: 048
     Dates: start: 19910101
  4. COD-LIVER OIL [Concomitant]
     Dosage: 1050 MG, 1X/DAY
     Dates: start: 20051101
  5. IMDUR [Concomitant]
     Indication: ANGINA PECTORIS
     Dosage: 60 MG, 1X/DAY
     Route: 048
     Dates: start: 20091101

REACTIONS (1)
  - SWOLLEN TONGUE [None]
